FAERS Safety Report 10959167 (Version 2)
Quarter: 2015Q2

REPORT INFORMATION
  Report Type: Spontaneous
  Country: US (occurrence: US)
  Receive Date: 20150327
  Receipt Date: 20150524
  Transmission Date: 20150821
  Serious: No
  Sender: FDA-Public Use
  Company Number: US-JNJFOC-20140926866

PATIENT
  Age: 66 Year
  Sex: Female
  Weight: 82.56 kg

DRUGS (1)
  1. FENTANYL TRANSDERMAL SYSTEM [Suspect]
     Active Substance: FENTANYL
     Indication: PRODUCT USED FOR UNKNOWN INDICATION
     Route: 062
     Dates: start: 20140911, end: 201409

REACTIONS (5)
  - Pruritus [Recovered/Resolved]
  - Dyspnoea [Recovered/Resolved]
  - Sleep disorder [Recovered/Resolved]
  - Product quality issue [Unknown]
  - Wheezing [Recovered/Resolved]

NARRATIVE: CASE EVENT DATE: 20140911
